FAERS Safety Report 17867691 (Version 1)
Quarter: 2020Q2

REPORT INFORMATION
  Report Type: Report from Study
  Country: US (occurrence: US)
  Receive Date: 20200605
  Receipt Date: 20200605
  Transmission Date: 20200714
  Serious: Yes (Hospitalization, Other)
  Sender: FDA-Public Use
  Company Number: US-BRISTOL-MYERS SQUIBB COMPANY-BMS-2020-043576

PATIENT
  Age: 71 Year
  Sex: Male
  Weight: 80.8 kg

DRUGS (3)
  1. IPILIMUMAB [Suspect]
     Active Substance: IPILIMUMAB
     Indication: MALIGNANT MELANOMA
     Dosage: TOTAL DOSE ADMINISTERED THIS COURSE: 0 MILLIGRAM
     Route: 065
     Dates: start: 20200114
  2. NIVOLUMAB [Suspect]
     Active Substance: NIVOLUMAB
     Indication: PRODUCT USED FOR UNKNOWN INDICATION
     Dosage: 240 MILLIGRAM, DAYS 1 AND 15, TOTAL DOSE ADMINISTERED THIS COURSE 480 MILLIGRAM
     Route: 042
  3. NIVOLUMAB [Suspect]
     Active Substance: NIVOLUMAB
     Indication: MALIGNANT MELANOMA
     Dosage: 1 MILLIGRAM/KILOGRAM ON DAY 1, CYCLE :21 DAYS. CYCLES 1 TO 4
     Route: 042
     Dates: start: 20200114

REACTIONS (3)
  - Adrenal insufficiency [Unknown]
  - Hypophysitis [Unknown]
  - Hyponatraemia [Unknown]

NARRATIVE: CASE EVENT DATE: 20200512
